FAERS Safety Report 7556462-4 (Version None)
Quarter: 2011Q2

REPORT INFORMATION
  Report Type: 
  Country: None (occurrence: None)
  Receive Date: 20110610
  Receipt Date: 20110527
  Transmission Date: 20111010
  Serious: Yes (Hospitalization, Other)
  Sender: FDA-Public Use
  Company Number: MPS1-1000444

PATIENT
  Age: 11 Year
  Sex: Female
  Weight: 25.8 kg

DRUGS (2)
  1. ALDURAZYME [Suspect]
     Indication: MUCOPOLYSACCHARIDOSIS I
     Dosage: 0.58 MG/KG, INTRAVENOUS
     Route: 042
     Dates: start: 20040101
  2. ALDURAZYME [Suspect]
     Indication: MUCOPOLYSACCHARIDOSIS I
     Dosage: 0.58 MG/KG, INTRAVENOUS
     Route: 042
     Dates: start: 20061004

REACTIONS (3)
  - NEUROPATHY PERIPHERAL [None]
  - SPINAL DISORDER [None]
  - KYPHOSIS [None]
